FAERS Safety Report 23324126 (Version 1)
Quarter: 2023Q4

REPORT INFORMATION
  Report Type: Spontaneous
  Country: BR (occurrence: BR)
  Receive Date: 20231221
  Receipt Date: 20231221
  Transmission Date: 20240110
  Serious: Yes (Other)
  Sender: FDA-Public Use
  Company Number: BR-ADVANZ PHARMA-202312011713

PATIENT

DRUGS (4)
  1. TRANYLCYPROMINE SULFATE [Suspect]
     Active Substance: TRANYLCYPROMINE SULFATE
     Indication: Agitated depression
     Dosage: UNK, 30 YEARS AGO
     Route: 065
  2. STELAZINE [Suspect]
     Active Substance: TRIFLUOPERAZINE HYDROCHLORIDE
     Indication: Agitated depression
     Dosage: 0.5 DOSAGE FORM, QD (HALF TABLET A DAY, STARTED 44 YEARS AGO)
     Route: 048
  3. STELAZINE [Suspect]
     Active Substance: TRIFLUOPERAZINE HYDROCHLORIDE
     Indication: Stress
  4. TRANYLCYPROMINE SULFATE\TRIFLUOPERAZINE HYDROCHLORIDE [Suspect]
     Active Substance: TRANYLCYPROMINE SULFATE\TRIFLUOPERAZINE HYDROCHLORIDE
     Indication: Product used for unknown indication
     Dosage: UNK, FOR 30 YEARS
     Route: 065

REACTIONS (3)
  - Bedridden [Unknown]
  - Drug dependence [Unknown]
  - Product availability issue [Unknown]
